FAERS Safety Report 5004538-8 (Version None)
Quarter: 2006Q2

REPORT INFORMATION
  Report Type: 
  Country: None (occurrence: None)
  Receive Date: 20060512
  Receipt Date: 20060427
  Transmission Date: 20061013
  Serious: Yes (Death, Life-Threatening, Hospitalization, Disabling)
  Sender: FDA-Public Use
  Company Number: WAES 0409USA01677

PATIENT
  Age: 64 Year
  Sex: Male

DRUGS (9)
  1. VIOXX [Suspect]
     Indication: NEOPLASM PROPHYLAXIS
     Dosage: 25 MG/DAILY/PO
     Route: 048
     Dates: start: 20010131, end: 20010801
  2. ACETAMINOPHEN [Suspect]
     Indication: PROPHYLAXIS
     Dosage: 325 MG/PRN/PO
     Route: 048
     Dates: start: 20001220, end: 20010801
  3. MICONAZOLE [Concomitant]
  4. CLOTRIMAZOLE [Concomitant]
  5. CYCLOBENZAPRINE HCL [Concomitant]
  6. DIPHENHYDRAMINE TANNATE [Concomitant]
  7. GLYBURIDE [Concomitant]
  8. GUAIFENESIN [Concomitant]
  9. METFORMIN [Concomitant]

REACTIONS (20)
  - ACUTE MYOCARDIAL INFARCTION [None]
  - ALANINE AMINOTRANSFERASE INCREASED [None]
  - ANGINA UNSTABLE [None]
  - ASPARTATE AMINOTRANSFERASE INCREASED [None]
  - CHRONIC OBSTRUCTIVE PULMONARY DISEASE [None]
  - CREPITATIONS [None]
  - DIABETES MELLITUS NON-INSULIN-DEPENDENT [None]
  - DYSPNOEA [None]
  - ELECTROMECHANICAL DISSOCIATION [None]
  - GASTROOESOPHAGEAL REFLUX DISEASE [None]
  - GLYCOSYLATED HAEMOGLOBIN INCREASED [None]
  - HAEMATOCRIT DECREASED [None]
  - HAEMOGLOBIN DECREASED [None]
  - HEART RATE INCREASED [None]
  - HYPOTENSION [None]
  - INTERNATIONAL NORMALISED RATIO INCREASED [None]
  - INTERSTITIAL LUNG DISEASE [None]
  - OCCULT BLOOD POSITIVE [None]
  - VENTRICULAR TACHYCARDIA [None]
  - WHEEZING [None]
